FAERS Safety Report 21411644 (Version 1)
Quarter: 2022Q4

REPORT INFORMATION
  Report Type: Spontaneous
  Country: US (occurrence: US)
  Receive Date: 20221005
  Receipt Date: 20221005
  Transmission Date: 20230112
  Serious: No
  Sender: FDA-Public Use
  Company Number: US-JUBILANT CADISTA PHARMACEUTICALS INC.-2022JUB00160

PATIENT
  Sex: Female
  Weight: 48.073 kg

DRUGS (14)
  1. PREDNISONE [Suspect]
     Active Substance: PREDNISONE
     Indication: Chronic obstructive pulmonary disease
     Dosage: 5 MG, 1X/DAY
     Dates: end: 202109
  2. PREDNISONE [Suspect]
     Active Substance: PREDNISONE
     Indication: Hypersensitivity
     Dosage: 5 MG, 1X/DAY
     Dates: end: 202203
  3. PREDNISONE [Suspect]
     Active Substance: PREDNISONE
     Dosage: 5 MG, 1X/DAY
     Dates: start: 2022, end: 20220426
  4. PREDNISONE [Suspect]
     Active Substance: PREDNISONE
     Dosage: 10 MG, 1X/DAY
     Dates: start: 202205, end: 202205
  5. PREDNISONE [Suspect]
     Active Substance: PREDNISONE
     Dosage: 5 MG, 1X/DAY
     Dates: start: 202205
  6. PREDNISONE [Suspect]
     Active Substance: PREDNISONE
     Indication: Chronic obstructive pulmonary disease
     Dosage: UNK
  7. PREDNISONE [Suspect]
     Active Substance: PREDNISONE
     Dosage: UNK
     Dates: start: 202109
  8. PREDNISONE [Suspect]
     Active Substance: PREDNISONE
     Dosage: UNK
     Dates: start: 202203, end: 2022
  9. PREDNISONE [Suspect]
     Active Substance: PREDNISONE
     Dosage: 40 MG, 1X/DAY FOR 3 DAYS
     Dates: start: 20220427, end: 20220429
  10. PREDNISONE [Suspect]
     Active Substance: PREDNISONE
     Dosage: 30 MG, 1X/DAY FOR 3 DAYS
     Dates: start: 20220430, end: 20220502
  11. PREDNISONE [Suspect]
     Active Substance: PREDNISONE
     Dosage: 20 MG, 1X/DAY
     Dates: start: 20220503, end: 202205
  12. HYDROCHLOROTHIAZIDE [Concomitant]
     Active Substance: HYDROCHLOROTHIAZIDE
     Dosage: 25 MG, 1X/DAY
  13. LIOTHYRONINE [Concomitant]
     Active Substance: LIOTHYRONINE
     Dosage: 5 ?G, 1X/DAY
  14. PREMPRO [Concomitant]
     Active Substance: ESTROGENS, CONJUGATED\MEDROXYPROGESTERONE ACETATE
     Dosage: 0.625/2.5 MG, 1X/DAY

REACTIONS (18)
  - Visual impairment [Recovered/Resolved]
  - Pain [Unknown]
  - Sinus pain [Recovered/Resolved]
  - Suspected COVID-19 [Recovered/Resolved]
  - Oropharyngeal pain [Recovered/Resolved]
  - Dyspnoea [Recovered/Resolved]
  - Asthenia [Recovered/Resolved]
  - Fatigue [Recovered/Resolved]
  - Pyrexia [Recovered/Resolved]
  - Decreased appetite [Recovered/Resolved]
  - Wheezing [Recovered/Resolved]
  - Respiratory tract congestion [Recovered/Resolved]
  - Fear [Recovered/Resolved]
  - Eye pruritus [Unknown]
  - Energy increased [Recovered/Resolved]
  - Hypersomnia [Recovered/Resolved]
  - Headache [Recovered/Resolved]
  - Drug ineffective for unapproved indication [Recovered/Resolved]

NARRATIVE: CASE EVENT DATE: 20220101
